FAERS Safety Report 16194611 (Version 1)
Quarter: 2019Q2

REPORT INFORMATION
  Report Type: Spontaneous
  Country: PL (occurrence: PL)
  Receive Date: 20190414
  Receipt Date: 20190414
  Transmission Date: 20190711
  Serious: Yes (Life-Threatening)
  Sender: FDA-Public Use
  Company Number: PL-TEVA-2019-PL-1036645

PATIENT
  Age: 56 Year
  Sex: Male
  Weight: 57 kg

DRUGS (2)
  1. KARBOPLATIN [Suspect]
     Active Substance: CARBOPLATIN
     Indication: CHEMOTHERAPY
     Dosage: EXPIRATION DATE: 30.06.2015. 519.26 - UNSPECIFIED UNITS.
     Route: 042
     Dates: start: 20140922
  2. NAVELBINE [Suspect]
     Active Substance: VINORELBINE TARTRATE
     Indication: CHEMOTHERAPY
     Dosage: EXPIRATION DATE: 28.02.2017. 50.39 - UNSPECIFIED UNITS AND FREQUENCY OF DRUG ADMINISTRATION.
     Route: 042
     Dates: start: 20140922, end: 20140929

REACTIONS (3)
  - Neutropenia [Unknown]
  - Pyrexia [Unknown]
  - Leukopenia [Unknown]

NARRATIVE: CASE EVENT DATE: 20141002
